FAERS Safety Report 8206333-5 (Version None)
Quarter: 2012Q1

REPORT INFORMATION
  Report Type: 
  Country: None (occurrence: None)
  Receive Date: 20120313
  Receipt Date: 20120307
  Transmission Date: 20120608
  Serious: Yes (Other)
  Sender: FDA-Public Use
  Company Number: US-ROCHE-793908

PATIENT
  Sex: Female
  Weight: 54.026 kg

DRUGS (3)
  1. SEROQUEL [Concomitant]
  2. ACCUTANE [Suspect]
     Indication: ACNE CYSTIC
     Route: 065
  3. ACCUTANE [Suspect]
     Route: 065
     Dates: start: 20080901, end: 20081101

REACTIONS (8)
  - DEPRESSION [None]
  - SUICIDE ATTEMPT [None]
  - INFLAMMATORY BOWEL DISEASE [None]
  - HEPATIC ENZYME INCREASED [None]
  - COLITIS [None]
  - SUICIDAL IDEATION [None]
  - CROHN'S DISEASE [None]
  - INTESTINAL OBSTRUCTION [None]
